FAERS Safety Report 18527230 (Version 1)
Quarter: 2020Q4

REPORT INFORMATION
  Report Type: Spontaneous
  Country: US (occurrence: US)
  Receive Date: 20201119
  Receipt Date: 20201119
  Transmission Date: 20210114
  Serious: Yes (Other)
  Sender: FDA-Public Use
  Company Number: None

PATIENT
  Age: 31 Year
  Sex: Male
  Weight: 56 kg

DRUGS (11)
  1. LACOSAMIDE. [Concomitant]
     Active Substance: LACOSAMIDE
     Dates: start: 20201110, end: 20201115
  2. DEXAMETHASONE. [Concomitant]
     Active Substance: DEXAMETHASONE
     Dates: start: 20201111, end: 20201115
  3. BACLOFEN. [Concomitant]
     Active Substance: BACLOFEN
     Dates: start: 20201110, end: 20201115
  4. AZITHROMYCIN ANHYDROUS. [Concomitant]
     Active Substance: AZITHROMYCIN ANHYDROUS
     Dates: start: 20201111, end: 20201115
  5. CITALOPRAM [Concomitant]
     Active Substance: CITALOPRAM HYDROBROMIDE
     Dates: start: 20201112, end: 20201115
  6. VALPROIC ACID. [Concomitant]
     Active Substance: VALPROIC ACID
     Dates: start: 20201110, end: 20201115
  7. DIAZEPAM. [Concomitant]
     Active Substance: DIAZEPAM
     Dates: start: 20201111, end: 20201111
  8. CEFTRIAZONE [Concomitant]
     Dates: start: 20201111, end: 20201115
  9. REMDESIVIR. [Suspect]
     Active Substance: REMDESIVIR
     Indication: COVID-19
     Route: 041
     Dates: start: 20201111, end: 20201115
  10. LORAZEPAM. [Concomitant]
     Active Substance: LORAZEPAM
     Dates: start: 20201115, end: 20201115
  11. QUETIAPINE. [Concomitant]
     Active Substance: QUETIAPINE
     Dates: start: 20201111, end: 20201113

REACTIONS (5)
  - Drug metabolite level high [None]
  - Encephalopathy [None]
  - Seizure [None]
  - Pneumonia [None]
  - Treatment noncompliance [None]

NARRATIVE: CASE EVENT DATE: 20201115
